FAERS Safety Report 22243771 (Version 2)
Quarter: 2023Q2

REPORT INFORMATION
  Report Type: Spontaneous
  Country: US (occurrence: US)
  Receive Date: 20230424
  Receipt Date: 20230523
  Transmission Date: 20230722
  Serious: No
  Sender: FDA-Public Use
  Company Number: US-PFIZER INC-202300165040

PATIENT
  Age: 45 Year
  Sex: Female
  Weight: 64.41 kg

DRUGS (2)
  1. PAXLOVID [Suspect]
     Active Substance: NIRMATRELVIR\RITONAVIR
     Indication: COVID-19 treatment
     Dosage: UNK, 2X/DAY
     Dates: start: 20230411, end: 20230416
  2. NORETHINDRONE [Concomitant]
     Active Substance: NORETHINDRONE
     Dosage: UNK
     Dates: start: 2014

REACTIONS (6)
  - Sinus congestion [Recovered/Resolved]
  - Rhinorrhoea [Recovered/Resolved]
  - Fatigue [Recovered/Resolved]
  - Cough [Recovered/Resolved]
  - Oropharyngeal pain [Recovered/Resolved]
  - Sinusitis [Recovered/Resolved]

NARRATIVE: CASE EVENT DATE: 20230420
